FAERS Safety Report 4841574-6 (Version None)
Quarter: 2005Q4

REPORT INFORMATION
  Report Type: 
  Country: None (occurrence: None)
  Receive Date: 20051130
  Receipt Date: 20050825
  Transmission Date: 20060501
  Serious: No
  Sender: FDA-Public Use
  Company Number: US-GLAXOSMITHKLINE-A0571850A

PATIENT
  Age: 48 Year
  Sex: Female

DRUGS (5)
  1. WELLBUTRIN XL [Suspect]
     Indication: DEPRESSION
     Dosage: 150MG PER DAY
     Route: 048
     Dates: start: 20050601
  2. TOPAMAX [Concomitant]
  3. CELEXA [Concomitant]
  4. SYNTHROID [Concomitant]
  5. TRAZODONE [Concomitant]

REACTIONS (9)
  - AGITATION [None]
  - ARTHRALGIA [None]
  - CHEST PAIN [None]
  - DRUG INEFFECTIVE [None]
  - MYALGIA [None]
  - NECK PAIN [None]
  - NERVOUSNESS [None]
  - OEDEMA PERIPHERAL [None]
  - TREMOR [None]
